FAERS Safety Report 25063988 (Version 2)
Quarter: 2025Q1

REPORT INFORMATION
  Report Type: Spontaneous
  Country: BG (occurrence: BG)
  Receive Date: 20250311
  Receipt Date: 20250324
  Transmission Date: 20250408
  Serious: Yes (Hospitalization)
  Sender: ACCORD
  Company Number: BG-Accord-472925

PATIENT
  Age: 64 Year
  Sex: Female

DRUGS (7)
  1. SPIRONOLACTONE [Suspect]
     Active Substance: SPIRONOLACTONE
     Indication: Hypertension
     Dosage: ONCE IN THE MORNING
     Dates: start: 202304, end: 2024
  2. BISOPROLOL FUMARATE [Suspect]
     Active Substance: BISOPROLOL FUMARATE
     Indication: Hypertension
     Dosage: HALF A TABLET IN THE MORNING (STRENGTH: 5MG)
     Dates: start: 202304, end: 2024
  3. CHLORTHALIDONE [Suspect]
     Active Substance: CHLORTHALIDONE
     Indication: Hypertension
     Dosage: ONCE IN THE MORNING
     Dates: start: 202304, end: 2024
  4. VALSARTAN [Suspect]
     Active Substance: VALSARTAN
     Indication: Hypertension
     Dosage: HALF A TABLET IN THE MORNING (STRENGTH:160 MG)
     Dates: start: 202304, end: 2024
  5. BETAHISTINE HYDROCHLORIDE [Concomitant]
     Active Substance: BETAHISTINE HYDROCHLORIDE
     Indication: Product used for unknown indication
     Dosage: TWICE DAILY-ONE IN THE MORNING AND ONE IN THE EVENING
     Dates: start: 202304
  6. CLOPIDOGREL [Concomitant]
     Active Substance: CLOPIDOGREL BISULFATE
     Indication: Product used for unknown indication
     Dosage: ONCE IN THE MORNING
     Dates: start: 202304
  7. ROSUVASTATIN [Concomitant]
     Active Substance: ROSUVASTATIN
     Indication: Product used for unknown indication
     Dosage: ONCE IN THE EVENING
     Dates: start: 202304

REACTIONS (1)
  - Lichen planopilaris [Recovering/Resolving]

NARRATIVE: CASE EVENT DATE: 20240101
